FAERS Safety Report 11225591 (Version 1)
Quarter: 2015Q2

REPORT INFORMATION
  Report Type: Spontaneous
  Country: US (occurrence: None)
  Receive Date: 20150626
  Receipt Date: 20150626
  Transmission Date: 20150821
  Serious: Yes (Hospitalization)
  Sender: FDA-Public Use
  Company Number: None

PATIENT
  Age: 44 Year
  Sex: Male
  Weight: 98.9 kg

DRUGS (5)
  1. CHLORPROMAZINE 100MG UPSHIRE SMITH [Suspect]
     Active Substance: CHLORPROMAZINE
     Indication: PSYCHOTIC DISORDER
     Route: 048
     Dates: start: 20150512, end: 20150529
  2. OLANZAPINE. [Concomitant]
     Active Substance: OLANZAPINE
  3. RISPERIDONE. [Concomitant]
     Active Substance: RISPERIDONE
  4. VALPROIC ACID. [Concomitant]
     Active Substance: VALPROIC ACID
  5. CHLORPROMAZINE 200MG UPSHIRE SMITH [Suspect]
     Active Substance: CHLORPROMAZINE
     Indication: PSYCHOTIC DISORDER
     Route: 048
     Dates: start: 20150529

REACTIONS (4)
  - Aggression [None]
  - Somnolence [None]
  - Dysstasia [None]
  - Blood pressure decreased [None]

NARRATIVE: CASE EVENT DATE: 20150529
